FAERS Safety Report 4872040-X (Version None)
Quarter: 2005Q4

REPORT INFORMATION
  Report Type: 
  Country: None (occurrence: None)
  Receive Date: 20051230
  Receipt Date: 20051220
  Transmission Date: 20060501
  Serious: Yes (Hospitalization)
  Sender: FDA-Public Use
  Company Number: 2005BI022379

PATIENT
  Age: 89 Year
  Sex: Male

DRUGS (2)
  1. ZEVALIN [Suspect]
     Indication: NON-HODGKIN'S LYMPHOMA
     Dosage: 1X; IV
     Route: 042
     Dates: start: 20051213, end: 20051213
  2. RITUXIMAB [Concomitant]

REACTIONS (2)
  - CARDIAC DISORDER [None]
  - FALL [None]
